FAERS Safety Report 24918150 (Version 1)
Quarter: 2025Q1

REPORT INFORMATION
  Report Type: Spontaneous
  Country: SE (occurrence: SE)
  Receive Date: 20250203
  Receipt Date: 20250203
  Transmission Date: 20250408
  Serious: Yes (Other)
  Sender: PFIZER
  Company Number: None

PATIENT
  Age: 55 Year
  Sex: Male

DRUGS (1)
  1. CABERGOLINE [Suspect]
     Active Substance: CABERGOLINE
     Indication: Prolactin-producing pituitary tumour
     Dates: start: 2017, end: 202212

REACTIONS (4)
  - Acute myocardial infarction [Unknown]
  - Pulmonary fibrosis [Unknown]
  - Dyspnoea [Unknown]
  - Polycythaemia [Unknown]

NARRATIVE: CASE EVENT DATE: 20221201
